FAERS Safety Report 16335998 (Version 1)
Quarter: 2019Q2

REPORT INFORMATION
  Report Type: Spontaneous
  Country: US (occurrence: US)
  Receive Date: 20190521
  Receipt Date: 20190521
  Transmission Date: 20190711
  Serious: No
  Sender: FDA-Public Use
  Company Number: US-TEVA-2019-US-1043007

PATIENT
  Age: 69 Year
  Sex: Female

DRUGS (1)
  1. CLONAZEPAM ACTAVIS [Suspect]
     Active Substance: CLONAZEPAM
     Dates: start: 201901

REACTIONS (9)
  - Depression [Unknown]
  - Dizziness [Unknown]
  - Rash [Unknown]
  - Drug intolerance [Unknown]
  - Radiculopathy [Unknown]
  - Therapeutic product effect decreased [Unknown]
  - Product substitution issue [Unknown]
  - Panic disorder [Unknown]
  - Headache [Unknown]

NARRATIVE: CASE EVENT DATE: 201901
